FAERS Safety Report 9808218 (Version 1)
Quarter: 2014Q1

REPORT INFORMATION
  Report Type: Spontaneous
  Country: US (occurrence: US)
  Receive Date: 20140110
  Receipt Date: 20140110
  Transmission Date: 20141002
  Serious: Yes (Death)
  Sender: FDA-Public Use
  Company Number: US-BAYER-2014-004947

PATIENT
  Age: 45 Year
  Sex: Female

DRUGS (3)
  1. DIPHENHYDRAMINE HYDROCHLORIDE [Suspect]
     Route: 048
  2. VERAPAMIL [Suspect]
     Route: 048
  3. METHADONE [Suspect]
     Route: 048

REACTIONS (1)
  - Toxicity to various agents [Fatal]
